FAERS Safety Report 8418041 (Version 3)
Quarter: 2012Q4

REPORT INFORMATION
  Report Type: 
  Country: AT (occurrence: AT)
  Receive Date: 20120221
  Receipt Date: 20121102
  Transmission Date: 20130627
  Serious: Yes (Hospitalization)
  Sender: FDA-Public Use
  Company Number: PHHY2012AT012631

PATIENT
  Age: 75 Year
  Sex: Female
  Weight: 75 kg

DRUGS (4)
  1. EBETREXAT [Suspect]
     Indication: RHEUMATOID ARTHRITIS
     Dosage: 10 mg, QW
     Route: 048
     Dates: start: 2000, end: 200204
  2. EBETREXAT [Suspect]
     Dosage: 10 mg, QW
     Route: 048
     Dates: start: 200207
  3. HUMIRA [Suspect]
     Indication: RHEUMATOID ARTHRITIS
     Dosage: 40 mg every 14 days
     Route: 058
     Dates: start: 2007
  4. FOLSAN [Concomitant]
     Dosage: 0.5 tablet daily
     Dates: start: 2000

REACTIONS (1)
  - Acute coronary syndrome [Recovered/Resolved]
